FAERS Safety Report 5913737-X (Version None)
Quarter: 2008Q4

REPORT INFORMATION
  Report Type: 
  Country: None (occurrence: None)
  Receive Date: 20081007
  Receipt Date: 20080929
  Transmission Date: 20090506
  Serious: Yes (Other)
  Sender: FDA-Public Use
  Company Number: 2008AP002577

PATIENT
  Age: 52 Year
  Sex: Male

DRUGS (1)
  1. DILT-XR [Suspect]
     Indication: ARTERIOSPASM CORONARY

REACTIONS (2)
  - DRUG ERUPTION [None]
  - PHOTOSENSITIVITY REACTION [None]
